FAERS Safety Report 9174230 (Version 1)
Quarter: 2013Q1

REPORT INFORMATION
  Report Type: Spontaneous
  Country: US (occurrence: US)
  Receive Date: 20130320
  Receipt Date: 20130320
  Transmission Date: 20140127
  Serious: Yes (Death)
  Sender: FDA-Public Use
  Company Number: US-JNJFOC-2006111647

PATIENT
  Age: 18 Year
  Sex: Male

DRUGS (9)
  1. PSEUDOEPHEDRINE [Suspect]
     Route: 048
  2. PSEUDOEPHEDRINE [Suspect]
     Indication: SUICIDE ATTEMPT
     Dosage: DAILY DOSE TEXT: UNKNOWN
     Route: 048
  3. IBUPROFEN [Suspect]
     Indication: SUICIDE ATTEMPT
     Dosage: DAILY DOSE TEXT: UNKNOWN
     Route: 048
  4. IBUPROFEN [Suspect]
     Indication: SUICIDE ATTEMPT
     Dosage: DAILY DOSE TEXT: UNKNOWN
     Route: 048
  5. ACETYLSALICYLIC ACID [Suspect]
     Indication: SUICIDE ATTEMPT
     Dosage: DAILY DOSE TEXT: UNKNOWN
     Route: 048
  6. PARACETAMOL/CODEINE [Suspect]
     Indication: SUICIDE ATTEMPT
     Dosage: DAILY DOSE TEXT: UNKNOWN
     Route: 048
  7. NAPROXEN [Suspect]
     Indication: SUICIDE ATTEMPT
     Dosage: DAILY DOSE TEXT: UNKNOWN
     Route: 048
  8. ESCITALOPRAM [Suspect]
     Indication: SUICIDE ATTEMPT
     Dosage: DAILY DOSE TEXT: UNKNOWN
     Route: 048
  9. CYCLOBENZAPRINE HYDROCHLORIDE [Suspect]
     Indication: SUICIDE ATTEMPT
     Dosage: DAILY DOSE TEXT: UNKNOWN
     Route: 048

REACTIONS (6)
  - Completed suicide [Fatal]
  - Intentional overdose [Fatal]
  - Subarachnoid haemorrhage [Fatal]
  - Hepatic function abnormal [Fatal]
  - Respiratory failure [Fatal]
  - Renal impairment [Fatal]
